FAERS Safety Report 11509850 (Version 1)
Quarter: 2015Q3

REPORT INFORMATION
  Report Type: Spontaneous
  Country: US (occurrence: US)
  Receive Date: 20150915
  Receipt Date: 20150915
  Transmission Date: 20151125
  Serious: No
  Sender: FDA-Public Use
  Company Number: US-JNJFOC-20141214290

PATIENT
  Sex: Male
  Weight: 77.11 kg

DRUGS (3)
  1. VISINE A MULTI-ACTION EYE ALLERGY RELIEF [Suspect]
     Active Substance: NAPHAZOLINE HYDROCHLORIDE\PHENIRAMINE MALEATE
     Route: 047
  2. VISINE A MULTI-ACTION EYE ALLERGY RELIEF [Suspect]
     Active Substance: NAPHAZOLINE HYDROCHLORIDE\PHENIRAMINE MALEATE
     Indication: OCULAR HYPERAEMIA
     Dosage: 1 TO 2 DROPS IN EACH EYE (3 OR 4 TIMES TOTAL)
     Route: 047
  3. VISINE TEARS DRY EYE RELIEF [Suspect]
     Active Substance: GLYCERIN\HYPROMELLOSES\POLYETHYLENE GLYCOL 400
     Indication: OCULAR HYPERAEMIA
     Route: 047

REACTIONS (1)
  - Eye disorder [Recovered/Resolved]
